FAERS Safety Report 20122780 (Version 1)
Quarter: 2021Q4

REPORT INFORMATION
  Report Type: Spontaneous
  Country: US (occurrence: US)
  Receive Date: 20211128
  Receipt Date: 20211128
  Transmission Date: 20220303
  Serious: Yes (Death, Hospitalization)
  Sender: FDA-Public Use
  Company Number: US-JNJFOC-20211133655

PATIENT
  Age: 35 Year
  Sex: Female
  Weight: 60 kg

DRUGS (2)
  1. TYLENOL EXTRA STRENGTH [Suspect]
     Active Substance: ACETAMINOPHEN
     Indication: Product used for unknown indication
     Dosage: TYLENOL EXTRA STRENGTH (ACETAMINOPHEN 500 MG), UNKNOWN DAILY DOSE FOR 30 DAYS.
     Route: 048
     Dates: end: 20000625
  2. VICODIN [Suspect]
     Active Substance: ACETAMINOPHEN\HYDROCODONE BITARTRATE
     Indication: Abdominal pain
     Dosage: VICODIN (HYDROCODONE BITARTRATE 5 MG/ACETAMINOPHEN 500 MG) TABLETS; 40 TABLETS, VICODIN (HYDROCODONE
     Route: 048
     Dates: end: 20000625

REACTIONS (8)
  - Acute hepatic failure [Fatal]
  - Acute kidney injury [Fatal]
  - Multiple organ dysfunction syndrome [Fatal]
  - Gastrointestinal haemorrhage [Fatal]
  - Acute respiratory distress syndrome [Fatal]
  - Acidosis [Fatal]
  - Product administration error [Fatal]
  - Overdose [Fatal]
